FAERS Safety Report 19434310 (Version 1)
Quarter: 2021Q2

REPORT INFORMATION
  Report Type: Report from Study
  Country: TH (occurrence: TH)
  Receive Date: 20210618
  Receipt Date: 20210618
  Transmission Date: 20210717
  Serious: Yes (Death)
  Sender: FDA-Public Use
  Company Number: TH-ASTRAZENECA-2021A036030

PATIENT
  Age: 927 Month
  Sex: Female

DRUGS (2)
  1. EYE DROP [Concomitant]
     Active Substance: UNSPECIFIED INGREDIENT
     Route: 065
  2. TAGRISSO [Suspect]
     Active Substance: OSIMERTINIB
     Indication: LUNG NEOPLASM MALIGNANT
     Route: 048
     Dates: start: 20210113, end: 20210204

REACTIONS (5)
  - Peripheral swelling [Fatal]
  - Eye inflammation [Fatal]
  - Bradyphrenia [Fatal]
  - Stomatitis [Fatal]
  - Brain neoplasm malignant [Fatal]

NARRATIVE: CASE EVENT DATE: 202101
